FAERS Safety Report 11067693 (Version 12)
Quarter: 2017Q2

REPORT INFORMATION
  Report Type: Report from Study
  Country: CA (occurrence: CA)
  Receive Date: 20150427
  Receipt Date: 20170623
  Transmission Date: 20170829
  Serious: Yes (Hospitalization, Other)
  Sender: FDA-Public Use
  Company Number: CA-ROCHE-1563563

PATIENT
  Age: 55 Year
  Sex: Female

DRUGS (13)
  1. MORPHINE [Concomitant]
     Active Substance: MORPHINE
     Dosage: LONG ACTING AND STATIC- SHORT ACTING
     Route: 065
  2. OMEPRAZOLE. [Concomitant]
     Active Substance: OMEPRAZOLE
  3. NORTRIPTYLINE [Concomitant]
     Active Substance: NORTRIPTYLINE
  4. AMILORIDE [Concomitant]
     Active Substance: AMILORIDE
  5. HYDROCHLOROTHIAZIDE. [Concomitant]
     Active Substance: HYDROCHLOROTHIAZIDE
  6. GABAPENTIN. [Concomitant]
     Active Substance: GABAPENTIN
  7. TRAMADOL. [Concomitant]
     Active Substance: TRAMADOL
     Dosage: LONG ACTING
     Route: 065
  8. ERIVEDGE [Suspect]
     Active Substance: VISMODEGIB
     Indication: BASAL CELL CARCINOMA
     Route: 065
     Dates: start: 2011
  9. MIDAMOR [Concomitant]
     Active Substance: AMILORIDE HYDROCHLORIDE
  10. ADVIL [Concomitant]
     Active Substance: IBUPROFEN
     Dosage: EXTRA STRENGTH
     Route: 065
  11. METOCLOPRAMIDE. [Suspect]
     Active Substance: METOCLOPRAMIDE
     Indication: NAUSEA
     Route: 065
     Dates: start: 201503
  12. TRAZODONE [Concomitant]
     Active Substance: TRAZODONE HYDROCHLORIDE
  13. TYLENOL [Concomitant]
     Active Substance: ACETAMINOPHEN
     Dosage: EXTRA STRENGTH
     Route: 065

REACTIONS (21)
  - Visual impairment [Unknown]
  - Nausea [Not Recovered/Not Resolved]
  - Pain [Unknown]
  - Sensory loss [Unknown]
  - Telangiectasia [Unknown]
  - Drug ineffective [Unknown]
  - Blood magnesium decreased [Unknown]
  - Skin ulcer [Unknown]
  - Anxiety [Not Recovered/Not Resolved]
  - Swelling [Unknown]
  - Dehydration [Unknown]
  - Muscle spasms [Unknown]
  - Neoplasm [Unknown]
  - Malaise [Not Recovered/Not Resolved]
  - Haemorrhage [Not Recovered/Not Resolved]
  - Facial pain [Unknown]
  - Bone cyst [Unknown]
  - Entropion [Unknown]
  - Vomiting [Not Recovered/Not Resolved]
  - Stress [Unknown]
  - Alopecia [Unknown]

NARRATIVE: CASE EVENT DATE: 201503
